FAERS Safety Report 9739556 (Version 2)
Quarter: 2014Q1

REPORT INFORMATION
  Report Type: Spontaneous
  Country: US (occurrence: US)
  Receive Date: 20131209
  Receipt Date: 20140324
  Transmission Date: 20141002
  Serious: Yes (Other)
  Sender: FDA-Public Use
  Company Number: US-TEVA-449449USA

PATIENT
  Sex: Female

DRUGS (7)
  1. OXYBUTYNIN [Suspect]
  2. PRAVASTATIN [Suspect]
  3. CELECOXIB [Concomitant]
     Dosage: 200 MILLIGRAM DAILY;
  4. AMLODIPINE [Concomitant]
  5. PRAVASTATIN [Concomitant]
  6. ACETYLSALICYLIC ACID [Concomitant]
  7. CEFACLOR [Concomitant]

REACTIONS (5)
  - Transient ischaemic attack [Unknown]
  - Hypertension [Unknown]
  - Peripheral vascular disorder [Unknown]
  - Gastrooesophageal reflux disease [Unknown]
  - Swollen tongue [Unknown]
